FAERS Safety Report 5669344-X (Version None)
Quarter: 2008Q1

REPORT INFORMATION
  Report Type: 
  Country: None (occurrence: None)
  Receive Date: 20080317
  Receipt Date: 20080304
  Transmission Date: 20080703
  Serious: Yes (Other)
  Sender: FDA-Public Use
  Company Number: PHEH2008US02452

PATIENT
  Age: 44 Year
  Sex: Male
  Weight: 94.331 kg

DRUGS (8)
  1. NORCO [Concomitant]
  2. CALCIUM [Concomitant]
  3. LOPID [Concomitant]
  4. FLOVENT [Concomitant]
  5. ALBUTEROL [Concomitant]
  6. LEXAPRO [Concomitant]
  7. SOMA [Concomitant]
  8. GLEEVEC [Suspect]
     Indication: CHRONIC MYELOID LEUKAEMIA
     Dosage: 400 MG, QD
     Route: 048
     Dates: start: 20060117

REACTIONS (1)
  - VITH NERVE PARALYSIS [None]
